FAERS Safety Report 6431183-X (Version None)
Quarter: 2009Q4

REPORT INFORMATION
  Report Type: 
  Country: None (occurrence: None)
  Receive Date: 20091105
  Receipt Date: 20091105
  Transmission Date: 20100525
  Serious: Yes (Other)
  Sender: FDA-Public Use
  Company Number: None

PATIENT
  Age: 58 Year
  Sex: Female
  Weight: 95.2554 kg

DRUGS (2)
  1. GABAPENTIN [Suspect]
     Indication: DEEP VEIN THROMBOSIS
     Dosage: 600 MG T.I.D. PO
     Route: 048
     Dates: start: 20091029, end: 20091103
  2. GABAPENTIN [Suspect]
     Indication: PAIN IN EXTREMITY
     Dosage: 600 MG T.I.D. PO
     Route: 048
     Dates: start: 20091029, end: 20091103

REACTIONS (4)
  - DIZZINESS [None]
  - DYSARTHRIA [None]
  - PARAESTHESIA [None]
  - TINNITUS [None]
